FAERS Safety Report 12933770 (Version 2)
Quarter: 2016Q4

REPORT INFORMATION
  Report Type: Report from Study
  Country: CI (occurrence: CI)
  Receive Date: 20161111
  Receipt Date: 20161114
  Transmission Date: 20170207
  Serious: Yes (Hospitalization, Other)
  Sender: FDA-Public Use
  Company Number: CI-009507513-1611CIV002587

PATIENT
  Age: 31 Year
  Sex: Female
  Weight: 48 kg

DRUGS (2)
  1. LAMIVUDINE AND TENOFOVIR DISOPROXIL FUMARATE [Suspect]
     Active Substance: LAMIVUDINE\TENOFOVIR DISOPROXIL FUMARATE
     Indication: HIV INFECTION
     Dosage: UNK, QD
     Dates: start: 20161005
  2. RALTEGRAVIR POTASSIUM [Suspect]
     Active Substance: RALTEGRAVIR POTASSIUM
     Indication: HIV INFECTION
     Dosage: 400 MG, BID
     Route: 048
     Dates: start: 20161005, end: 20161104

REACTIONS (5)
  - Pyrexia [Unknown]
  - Influenza like illness [Unknown]
  - Cholecystitis acute [Unknown]
  - Jaundice [Unknown]
  - Pneumonitis [Unknown]

NARRATIVE: CASE EVENT DATE: 20161025
